FAERS Safety Report 18793814 (Version 2)
Quarter: 2021Q3

REPORT INFORMATION
  Report Type: Spontaneous
  Country: JP (occurrence: JP)
  Receive Date: 20210127
  Receipt Date: 20210720
  Transmission Date: 20211014
  Serious: Yes (Other)
  Sender: FDA-Public Use
  Company Number: JP-COLLEGIUM PHARMACEUTICAL, INC.-2021CGM00057

PATIENT
  Age: 78 Year
  Sex: Female

DRUGS (4)
  1. OXYCONTIN TR [Concomitant]
     Active Substance: OXYCODONE HYDROCHLORIDE
  2. OXYCONTIN TR [Concomitant]
     Active Substance: OXYCODONE HYDROCHLORIDE
  3. NARUSUS [Concomitant]
     Active Substance: HYDROMORPHONE HYDROCHLORIDE
  4. NUCYNTA ER [Suspect]
     Active Substance: TAPENTADOL HYDROCHLORIDE
     Indication: CANCER PAIN
     Dosage: 100 MG, 1X/DAY
     Route: 048

REACTIONS (3)
  - Delirium [Not Recovered/Not Resolved]
  - Hallucination [Unknown]
  - Hallucination, auditory [Unknown]

NARRATIVE: CASE EVENT DATE: 20210110
